FAERS Safety Report 4647147-2 (Version None)
Quarter: 2005Q2

REPORT INFORMATION
  Report Type: 
  Country: None (occurrence: None)
  Receive Date: 20050426
  Receipt Date: 20050413
  Transmission Date: 20051028
  Serious: Yes (Other)
  Sender: FDA-Public Use
  Company Number: 2005059828

PATIENT
  Age: 50 Year
  Sex: Female

DRUGS (1)
  1. BEXTRA [Suspect]
     Indication: INFLAMMATION
     Dosage: (20 MG), ORAL
     Route: 048

REACTIONS (2)
  - HYPERSENSITIVITY [None]
  - OEDEMA [None]
